FAERS Safety Report 6051208-3 (Version None)
Quarter: 2009Q1

REPORT INFORMATION
  Report Type: 
  Country: None (occurrence: None)
  Receive Date: 20090126
  Receipt Date: 20090115
  Transmission Date: 20090719
  Serious: Yes (Hospitalization)
  Sender: FDA-Public Use
  Company Number: JP-ASTRAZENECA-2009SE00382

PATIENT
  Age: 83 Year
  Sex: Female

DRUGS (10)
  1. KENZEN [Suspect]
     Indication: HYPERTENSION
     Route: 048
     Dates: end: 20080601
  2. BISOPROLOL [Interacting]
     Indication: HYPERTENSION
     Route: 048
  3. VERAPAMIL [Interacting]
     Indication: HYPERTENSION
     Route: 048
     Dates: end: 20080601
  4. NIFEDIPINE [Interacting]
     Indication: HYPERTENSION
     Route: 048
     Dates: end: 20080601
  5. FUROSEMIDE [Interacting]
     Indication: HYPERTENSION
     Route: 048
     Dates: end: 20080601
  6. PREVISCAN [Concomitant]
     Indication: DRUG USE FOR UNKNOWN INDICATION
     Route: 048
  7. DIFFU-K [Concomitant]
     Indication: DRUG USE FOR UNKNOWN INDICATION
     Route: 048
  8. ART-50 [Concomitant]
     Indication: DRUG USE FOR UNKNOWN INDICATION
     Route: 048
     Dates: end: 20080601
  9. CREON [Concomitant]
     Indication: DRUG USE FOR UNKNOWN INDICATION
     Route: 048
  10. PANTOPRAZOLE SODIUM [Concomitant]
     Indication: DRUG USE FOR UNKNOWN INDICATION
     Route: 048
     Dates: end: 20080601

REACTIONS (2)
  - DRUG INTERACTION [None]
  - HYPOTENSION [None]
